FAERS Safety Report 12331369 (Version 1)
Quarter: 2016Q2

REPORT INFORMATION
  Report Type: Spontaneous
  Country: None (occurrence: GB)
  Receive Date: 20160504
  Receipt Date: 20160504
  Transmission Date: 20160815
  Serious: Yes (Death, Other)
  Sender: FDA-Public Use
  Company Number: GB-CELGENEUS-GBR-2014114975

PATIENT

DRUGS (2)
  1. AZACITIDINE. [Suspect]
     Active Substance: AZACITIDINE
     Indication: ACUTE MYELOID LEUKAEMIA
  2. AZACITIDINE. [Suspect]
     Active Substance: AZACITIDINE
     Indication: MYELODYSPLASTIC SYNDROME
     Dosage: VARIOUS FREQUENCIES FROM 5 TO 7 DAYS/ MONTHS.
     Route: 065

REACTIONS (10)
  - Sepsis [Unknown]
  - Toxicity to various agents [Unknown]
  - Complications of transplant surgery [Fatal]
  - Hepatotoxicity [Unknown]
  - Disease recurrence [Fatal]
  - Graft versus host disease [Fatal]
  - Gastrointestinal toxicity [Unknown]
  - Neutropenia [Unknown]
  - Pneumonia [Unknown]
  - Infection [Fatal]
